FAERS Safety Report 6099701-1 (Version None)
Quarter: 2009Q1

REPORT INFORMATION
  Report Type: 
  Country: None (occurrence: None)
  Receive Date: 20090303
  Receipt Date: 20090226
  Transmission Date: 20090719
  Serious: Yes (Hospitalization)
  Sender: FDA-Public Use
  Company Number: JP-BRISTOL-MYERS SQUIBB COMPANY-14523732

PATIENT
  Age: 63 Year
  Sex: Male

DRUGS (2)
  1. CARBOPLATIN [Suspect]
     Indication: NON-SMALL CELL LUNG CANCER
     Dosage: 1 DF = 6 AUC; INITIAL DATE: 11DEC08
     Route: 042
     Dates: start: 20090202, end: 20090202
  2. ABRAXANE [Suspect]
     Indication: NON-SMALL CELL LUNG CANCER
     Dosage: INITAL DOSE: 11-DEC-2008
     Route: 042
     Dates: start: 20090209, end: 20090209

REACTIONS (1)
  - DEPRESSED LEVEL OF CONSCIOUSNESS [None]
